FAERS Safety Report 18661837 (Version 2)
Quarter: 2021Q1

REPORT INFORMATION
  Report Type: Report from Study
  Country: MX (occurrence: MX)
  Receive Date: 20201224
  Receipt Date: 20210108
  Transmission Date: 20210419
  Serious: Yes (Other)
  Sender: FDA-Public Use
  Company Number: NVSC2020MX340566

PATIENT
  Age: 54 Year
  Sex: Female
  Weight: 69 kg

DRUGS (1)
  1. DIOVAN [Suspect]
     Active Substance: VALSARTAN
     Indication: BLOOD PRESSURE INCREASED
     Dosage: 1 DF, QD
     Route: 048
     Dates: start: 20091224, end: 201906

REACTIONS (1)
  - Deafness [Recovered/Resolved]

NARRATIVE: CASE EVENT DATE: 20091224
